FAERS Safety Report 12536102 (Version 1)
Quarter: 2016Q3

REPORT INFORMATION
  Report Type: Spontaneous
  Country: JP (occurrence: JP)
  Receive Date: 20160707
  Receipt Date: 20160707
  Transmission Date: 20161109
  Serious: Yes (Hospitalization)
  Sender: FDA-Public Use
  Company Number: JP-ELI_LILLY_AND_COMPANY-JP201503001171

PATIENT
  Age: 33 Year
  Sex: Female
  Weight: 54 kg

DRUGS (7)
  1. HUMULIN R [Suspect]
     Active Substance: INSULIN HUMAN
     Dosage: 6-6-4-0, DAY 3 OF HOSPITALIZATION
     Route: 065
  2. HUMULIN N [Suspect]
     Active Substance: INSULIN HUMAN
     Indication: FULMINANT TYPE 1 DIABETES MELLITUS
     Dosage: 20 IU, QD, DAY 2 OF HOSPITALIZATION
     Route: 065
  3. HUMULIN N [Suspect]
     Active Substance: INSULIN HUMAN
     Dosage: 20 IU, QD, DAY 3 OF HOSPITALIZATION
     Route: 065
  4. HUMULIN R [Suspect]
     Active Substance: INSULIN HUMAN
     Indication: FULMINANT TYPE 1 DIABETES MELLITUS
     Dosage: UNK, DAY 1 OF HOSPITALIZATION
     Route: 042
  5. HUMULIN R [Suspect]
     Active Substance: INSULIN HUMAN
     Indication: FULMINANT TYPE 1 DIABETES MELLITUS
     Dosage: 6-2-10-0, DAY 2 OF HOSPITALIZATION
     Route: 065
  6. HUMALOG [Suspect]
     Active Substance: INSULIN LISPRO
     Indication: FULMINANT TYPE 1 DIABETES MELLITUS
     Dosage: UNK
     Route: 058
  7. INSULIN DETEMIR [Concomitant]
     Active Substance: INSULIN DETEMIR
     Indication: FULMINANT TYPE 1 DIABETES MELLITUS
     Dosage: UNK
     Route: 058

REACTIONS (4)
  - Blood glucose increased [Recovered/Resolved]
  - Threatened labour [Recovered/Resolved]
  - Blood glucose fluctuation [Recovered/Resolved]
  - Maternal exposure during pregnancy [Unknown]
